FAERS Safety Report 21985014 (Version 1)
Quarter: 2023Q1

REPORT INFORMATION
  Report Type: Spontaneous
  Country: CN (occurrence: CN)
  Receive Date: 20230213
  Receipt Date: 20230213
  Transmission Date: 20230417
  Serious: Yes (Other)
  Sender: FDA-Public Use
  Company Number: CN-UCBSA-2023006255

PATIENT
  Age: 2 Month
  Sex: Male

DRUGS (3)
  1. LEVETIRACETAM [Suspect]
     Active Substance: LEVETIRACETAM
     Indication: Epilepsy
     Dosage: 10 MG/KG/DAY, Q12H
  2. LEVETIRACETAM [Suspect]
     Active Substance: LEVETIRACETAM
     Dosage: 20 MG/KG/DAY (AT DAY 3)
  3. LEVETIRACETAM [Suspect]
     Active Substance: LEVETIRACETAM
     Dosage: 10 MG/KG/DAY AS A MAINTENANCE DOSE

REACTIONS (2)
  - Infantile spasms [Recovering/Resolving]
  - Neurodevelopmental disorder [Recovering/Resolving]
